FAERS Safety Report 23559366 (Version 1)
Quarter: 2024Q1

REPORT INFORMATION
  Report Type: Spontaneous
  Country: CO (occurrence: CO)
  Receive Date: 20240223
  Receipt Date: 20240223
  Transmission Date: 20240410
  Serious: Yes (Other)
  Sender: FDA-Public Use
  Company Number: CO-JNJFOC-20240259987

PATIENT
  Age: 32 Year
  Sex: Male
  Weight: 85 kg

DRUGS (1)
  1. RISPERDAL [Suspect]
     Active Substance: RISPERIDONE
     Indication: Schizoaffective disorder
     Route: 048
     Dates: end: 202401

REACTIONS (10)
  - Immobile [Unknown]
  - Hypoxia [Unknown]
  - Pain [Unknown]
  - Poor personal hygiene [Unknown]
  - Appetite disorder [Unknown]
  - Abnormal behaviour [Unknown]
  - Treatment noncompliance [Unknown]
  - Loss of personal independence in daily activities [Unknown]
  - Headache [Unknown]
  - Memory impairment [Unknown]

NARRATIVE: CASE EVENT DATE: 20240101
